FAERS Safety Report 6427074-0 (Version None)
Quarter: 2009Q4

REPORT INFORMATION
  Report Type: 
  Country: None (occurrence: None)
  Receive Date: 20091104
  Receipt Date: 20091026
  Transmission Date: 20100525
  Serious: Yes (Death)
  Sender: FDA-Public Use
  Company Number: JP-BRISTOL-MYERS SQUIBB COMPANY-14833537

PATIENT
  Age: 58 Year
  Sex: Male

DRUGS (3)
  1. PARAPLATIN [Suspect]
     Indication: THYMOMA
     Route: 041
     Dates: start: 20060501, end: 20060701
  2. TAXOL [Suspect]
     Indication: THYMOMA
     Route: 041
     Dates: start: 20070201
  3. GEMCITABINE [Suspect]
     Indication: THYMOMA

REACTIONS (1)
  - POLYMYOSITIS [None]
